FAERS Safety Report 12154090 (Version 1)
Quarter: 2016Q1

REPORT INFORMATION
  Report Type: Spontaneous
  Country: US (occurrence: None)
  Receive Date: 20160304
  Receipt Date: 20160304
  Transmission Date: 20160526
  Serious: No
  Sender: FDA-Public Use
  Company Number: None

PATIENT
  Sex: Male

DRUGS (1)
  1. IMATINIB 400MG SUN PHARMACEUTICALS [Suspect]
     Active Substance: IMATINIB
     Indication: GASTROINTESTINAL NEOPLASM
     Route: 048

REACTIONS (5)
  - Abdominal pain upper [None]
  - Nausea [None]
  - Vomiting [None]
  - Drug intolerance [None]
  - Swollen tongue [None]
